FAERS Safety Report 16413540 (Version 4)
Quarter: 2020Q1

REPORT INFORMATION
  Report Type: Spontaneous
  Country: AR (occurrence: AR)
  Receive Date: 20190611
  Receipt Date: 20200113
  Transmission Date: 20200409
  Serious: Yes (Other)
  Sender: FDA-Public Use
  Company Number: AR-GLAXOSMITHKLINE-AR2019GSK052820

PATIENT
  Age: 70 Year
  Sex: Female

DRUGS (1)
  1. BENLYSTA [Suspect]
     Active Substance: BELIMUMAB
     Indication: SYSTEMIC LUPUS ERYTHEMATOSUS
     Dosage: UNK
     Dates: start: 20160204

REACTIONS (16)
  - Pain [Unknown]
  - Therapy cessation [Unknown]
  - Abdominal discomfort [Unknown]
  - Product availability issue [Unknown]
  - Inappropriate schedule of product administration [Unknown]
  - Bronchitis [Unknown]
  - Influenza [Unknown]
  - Depressed mood [Unknown]
  - Speech disorder [Unknown]
  - Back pain [Unknown]
  - Movement disorder [Unknown]
  - Cerebrovascular accident [Unknown]
  - Fatigue [Unknown]
  - White blood cell count decreased [Unknown]
  - Aphasia [Unknown]
  - Red blood cell count decreased [Unknown]

NARRATIVE: CASE EVENT DATE: 201905
